FAERS Safety Report 6965492-2 (Version None)
Quarter: 2010Q3

REPORT INFORMATION
  Report Type: 
  Country: None (occurrence: None)
  Receive Date: 20100903
  Receipt Date: 20100826
  Transmission Date: 20110219
  Serious: Yes (Hospitalization, Other)
  Sender: FDA-Public Use
  Company Number: US-ASTRAZENECA-2010SE40209

PATIENT
  Age: 74 Year
  Sex: Female

DRUGS (3)
  1. CRESTOR [Suspect]
     Indication: HYPERCHOLESTEROLAEMIA
     Route: 048
  2. CRESTOR [Suspect]
     Route: 048
  3. CRESTOR [Suspect]
     Dosage: 20MG AND 40MG TABLETS DAILY, TOTAL 60MG DAILY
     Route: 048
     Dates: start: 20100101, end: 20100101

REACTIONS (2)
  - ACCIDENTAL OVERDOSE [None]
  - RHABDOMYOLYSIS [None]
